FAERS Safety Report 13130026 (Version 3)
Quarter: 2017Q1

REPORT INFORMATION
  Report Type: Report from Study
  Country: US (occurrence: US)
  Receive Date: 20170119
  Receipt Date: 20170209
  Transmission Date: 20170428
  Serious: Yes (Other)
  Sender: FDA-Public Use
  Company Number: US-AMGEN-USASL2017005603

PATIENT
  Age: 58 Year
  Sex: Female
  Weight: 66.7 kg

DRUGS (1)
  1. REPATHA [Suspect]
     Active Substance: EVOLOCUMAB
     Indication: HYPERLIPIDAEMIA
     Dosage: 140 MG, Q2WK
     Route: 058
     Dates: start: 201610

REACTIONS (3)
  - Hypersensitivity [Recovered/Resolved]
  - Influenza like illness [Unknown]
  - Myalgia [Unknown]

NARRATIVE: CASE EVENT DATE: 20161212
